FAERS Safety Report 25426390 (Version 1)
Quarter: 2025Q2

REPORT INFORMATION
  Report Type: Spontaneous
  Country: US (occurrence: US)
  Receive Date: 20250612
  Receipt Date: 20250612
  Transmission Date: 20250717
  Serious: No
  Sender: STALLERGENES
  Company Number: US-STALCOR-2025-AER-01215

PATIENT
  Age: 17 Year
  Sex: Female
  Weight: 59.3 kg

DRUGS (3)
  1. PALFORZIA [Suspect]
     Active Substance: PEANUT
     Indication: Food allergy
     Dosage: MAINTENANCE DOSE 300MG
     Route: 048
     Dates: end: 202408
  2. ALBUTEROL SULFATE [Concomitant]
     Active Substance: ALBUTEROL SULFATE
     Indication: Product used for unknown indication
  3. RETIN-A [Concomitant]
     Active Substance: TRETINOIN
     Indication: Product used for unknown indication

REACTIONS (3)
  - Pruritus [Unknown]
  - Urticaria [Unknown]
  - Therapy cessation [Unknown]

NARRATIVE: CASE EVENT DATE: 20240801
